FAERS Safety Report 20643676 (Version 1)
Quarter: 2022Q1

REPORT INFORMATION
  Report Type: Spontaneous
  Country: FR (occurrence: FR)
  Receive Date: 20220328
  Receipt Date: 20220328
  Transmission Date: 20220423
  Serious: Yes (Other)
  Sender: FDA-Public Use
  Company Number: FR-NOVARTISPH-NVSC2022FR069328

PATIENT
  Age: 62 Year
  Sex: Male

DRUGS (1)
  1. TEGRETOL [Suspect]
     Active Substance: CARBAMAZEPINE
     Indication: Trigeminal neuralgia
     Dosage: 1600 MG, QD
     Route: 048
     Dates: start: 2007

REACTIONS (2)
  - Cerebrovascular accident [Unknown]
  - Trigeminal neuralgia [Unknown]
